FAERS Safety Report 23989623 (Version 1)
Quarter: 2024Q2

REPORT INFORMATION
  Report Type: Report from Study
  Country: FR (occurrence: FR)
  Receive Date: 20240619
  Receipt Date: 20240619
  Transmission Date: 20240716
  Serious: Yes (Other)
  Sender: FDA-Public Use
  Company Number: FR-IPSEN Group, Research and Development-2024-11925

PATIENT
  Age: 77 Year
  Sex: Male
  Weight: 91 kg

DRUGS (15)
  1. CABOZANTINIB [Suspect]
     Active Substance: CABOZANTINIB
     Indication: Renal cell carcinoma
     Dosage: 40 MG, QD
     Route: 048
     Dates: start: 20240123, end: 20240415
  2. CABOZANTINIB [Suspect]
     Active Substance: CABOZANTINIB
     Dosage: 30 MG, QD
     Route: 048
     Dates: start: 20240423
  3. NIVOLUMAB [Suspect]
     Active Substance: NIVOLUMAB
     Indication: Renal cell carcinoma
     Dosage: ONCE
     Route: 042
     Dates: start: 20240219
  4. NIVOLUMAB [Suspect]
     Active Substance: NIVOLUMAB
     Dosage: ONCE
     Route: 042
     Dates: start: 20240318
  5. NIVOLUMAB [Suspect]
     Active Substance: NIVOLUMAB
     Dosage: ONCE
     Route: 042
     Dates: start: 20240415
  6. NIVOLUMAB [Suspect]
     Active Substance: NIVOLUMAB
     Dosage: ONCE
     Route: 042
     Dates: start: 20240513
  7. NIVOLUMAB [Suspect]
     Active Substance: NIVOLUMAB
     Dosage: ONCE
     Route: 042
     Dates: start: 20240610
  8. NIVOLUMAB [Suspect]
     Active Substance: NIVOLUMAB
     Dosage: ONCE
     Route: 042
     Dates: start: 20240123
  9. METFORMIN HYDROCHLORIDE [Concomitant]
     Active Substance: METFORMIN HYDROCHLORIDE
     Indication: Diabetes mellitus
     Route: 048
  10. TRULICITY [Concomitant]
     Active Substance: DULAGLUTIDE
     Indication: Diabetes mellitus
     Route: 048
  11. REPAGLINIDE [Concomitant]
     Active Substance: REPAGLINIDE
     Indication: Diabetes mellitus
     Route: 048
  12. NEBIVOLOL [Concomitant]
     Active Substance: NEBIVOLOL
     Indication: Hypertension
     Route: 048
  13. RILMENIDINE [Concomitant]
     Active Substance: RILMENIDINE
     Indication: Hypertension
     Route: 048
  14. ZOPICLONE [Concomitant]
     Active Substance: ZOPICLONE
     Indication: Insomnia
     Route: 048
     Dates: start: 20240123
  15. POLYETHYLENE GLYCOLS [Concomitant]
     Active Substance: POLYETHYLENE GLYCOLS
     Indication: Constipation
     Route: 048
     Dates: start: 20240219

REACTIONS (4)
  - Hepatic cytolysis [Not Recovered/Not Resolved]
  - Stomatitis [Not Recovered/Not Resolved]
  - Nausea [Not Recovered/Not Resolved]
  - Asthenia [Not Recovered/Not Resolved]

NARRATIVE: CASE EVENT DATE: 20240315
